FAERS Safety Report 15643435 (Version 2)
Quarter: 2018Q4

REPORT INFORMATION
  Report Type: Spontaneous
  Country: ZA (occurrence: ZA)
  Receive Date: 20181121
  Receipt Date: 20181206
  Transmission Date: 20190205
  Serious: No
  Sender: FDA-Public Use
  Company Number: PHHY2018ZA011515

PATIENT
  Age: 79 Year
  Sex: Female

DRUGS (2)
  1. HEXARONE [Suspect]
     Active Substance: AMIODARONE
     Indication: ARRHYTHMIA
  2. HEXARONE [Suspect]
     Active Substance: AMIODARONE
     Indication: HYPERTENSION
     Dosage: 100 MG, UNK
     Route: 048
     Dates: start: 201805

REACTIONS (3)
  - Myalgia [Recovering/Resolving]
  - Fall [Unknown]
  - Muscle strain [Unknown]

NARRATIVE: CASE EVENT DATE: 20181106
